FAERS Safety Report 5152475-0 (Version None)
Quarter: 2006Q4

REPORT INFORMATION
  Report Type: 
  Country: None (occurrence: None)
  Receive Date: 20061116
  Receipt Date: 20061106
  Transmission Date: 20070319
  Serious: Yes (Death)
  Sender: FDA-Public Use
  Company Number: HU-ELI_LILLY_AND_COMPANY-HU200611000802

PATIENT
  Age: 64 Year
  Sex: Male

DRUGS (6)
  1. PEMETREXED [Suspect]
     Indication: MESOTHELIOMA MALIGNANT
     Dosage: 1000 MG, UNK
     Route: 042
     Dates: start: 20061018
  2. FUROSEMIDE [Concomitant]
  3. VITAMIN B-12 [Concomitant]
  4. VEROSPIRON [Concomitant]
  5. CONTRAMAL [Concomitant]
  6. FOLIC ACID [Concomitant]

REACTIONS (1)
  - COMPLETED SUICIDE [None]
